FAERS Safety Report 25077599 (Version 1)
Quarter: 2025Q1

REPORT INFORMATION
  Report Type: Report from Study
  Country: DE (occurrence: DE)
  Receive Date: 20250314
  Receipt Date: 20250314
  Transmission Date: 20250409
  Serious: Yes (Other)
  Sender: NORDIC PHARMA
  Company Number: DE-JNJFOC-20250250058

PATIENT
  Age: 7 Year
  Sex: Female

DRUGS (2)
  1. METHOTREXATE [Suspect]
     Active Substance: METHOTREXATE
     Indication: Juvenile idiopathic arthritis
     Route: 065
     Dates: start: 20240308
  2. SIMPONI [Concomitant]
     Active Substance: GOLIMUMAB
     Indication: Juvenile idiopathic arthritis
     Route: 058
     Dates: start: 20240410, end: 20240906

REACTIONS (2)
  - Juvenile idiopathic arthritis [Recovered/Resolved]
  - Drug ineffective [Unknown]

NARRATIVE: CASE EVENT DATE: 20240901
